FAERS Safety Report 13693251 (Version 3)
Quarter: 2017Q3

REPORT INFORMATION
  Report Type: Report from Study
  Country: GB (occurrence: GB)
  Receive Date: 20170627
  Receipt Date: 20170925
  Transmission Date: 20171127
  Serious: Yes (Other)
  Sender: FDA-Public Use
  Company Number: GB-ROCHE-1950285

PATIENT
  Sex: Female

DRUGS (8)
  1. CYCLOPHOSPHAMIDE. [Suspect]
     Active Substance: CYCLOPHOSPHAMIDE
     Indication: HER-2 POSITIVE BREAST CANCER
     Route: 040
  2. FLUOROURACIL. [Suspect]
     Active Substance: FLUOROURACIL
     Dosage: ON DAY 1 OF CYCLE 5-8
     Route: 040
  3. EPIRUBICIN [Suspect]
     Active Substance: EPIRUBICIN
     Indication: HER-2 POSITIVE BREAST CANCER
     Dosage: ON DAY 1 OF CYCLE 5-8
     Route: 042
  4. EPIRUBICIN [Suspect]
     Active Substance: EPIRUBICIN
     Dosage: ON DAY 1 OF CYCLE 5-8
     Route: 040
  5. FLUOROURACIL. [Suspect]
     Active Substance: FLUOROURACIL
     Indication: HER-2 POSITIVE BREAST CANCER
     Dosage: ON DAY 1 OF CYCLE 5-8
     Route: 042
  6. TRASTUZUMAB. [Suspect]
     Active Substance: TRASTUZUMAB
     Dosage: ON DAY 1 OF CYCLE 2-8?EIGHT CYCLES, EACH LASTING 3 WEEKS, FOR 24 WEEKS
     Route: 042
  7. DOCETAXEL. [Suspect]
     Active Substance: DOCETAXEL
     Indication: HER-2 POSITIVE BREAST CANCER
     Dosage: ON DAY 1 OF CYCLES 1-4
     Route: 042
  8. TRASTUZUMAB. [Suspect]
     Active Substance: TRASTUZUMAB
     Indication: HER-2 POSITIVE BREAST CANCER
     Dosage: LOADING DOSE?ON DAY 1 OF CYCLE 1?EIGHT CYCLES, EACH LASTING 3 WEEKS, FOR 24 WEEKS
     Route: 042

REACTIONS (57)
  - Leukopenia [Unknown]
  - Aspartate aminotransferase increased [Unknown]
  - White blood cell count decreased [Unknown]
  - Cerebral infarction [Unknown]
  - Ventricular hyperkinesia [Unknown]
  - Abdominal pain [Unknown]
  - Gastritis [Unknown]
  - Endocarditis [Unknown]
  - Pneumonia [Unknown]
  - Electrocardiogram QT prolonged [Unknown]
  - Peripheral sensory neuropathy [Unknown]
  - Palmar-plantar erythrodysaesthesia syndrome [Unknown]
  - Pericarditis [Unknown]
  - Anaemia [Unknown]
  - Bronchitis [Unknown]
  - Cellulitis [Unknown]
  - Subcutaneous abscess [Unknown]
  - Hypernatraemia [Unknown]
  - Bone pain [Unknown]
  - Cardiac disorder [Unknown]
  - Hypertensive heart disease [Unknown]
  - Tachycardia [Unknown]
  - Febrile neutropenia [Unknown]
  - Leukocytosis [Unknown]
  - Hypoacusis [Unknown]
  - Septic embolus [Unknown]
  - Cardiotoxicity [Unknown]
  - Sinus tachycardia [Unknown]
  - Lymphopenia [Unknown]
  - Neutropenia [Unknown]
  - Nausea [Unknown]
  - Proctitis [Unknown]
  - Gamma-glutamyltransferase increased [Unknown]
  - Neutrophil count decreased [Unknown]
  - Hypocalcaemia [Unknown]
  - Hyponatraemia [Unknown]
  - Ovarian germ cell teratoma benign [Unknown]
  - Hypertension [Unknown]
  - Cardiomyopathy [Unknown]
  - Ejection fraction decreased [Unknown]
  - Diarrhoea [Unknown]
  - Stomatitis [Unknown]
  - Device related infection [Unknown]
  - Infusion related reaction [Unknown]
  - Deep vein thrombosis [Unknown]
  - Infection [Unknown]
  - Mitral valve incompetence [Unknown]
  - Right ventricular failure [Unknown]
  - Haemorrhoidal haemorrhage [Unknown]
  - Asthenia [Unknown]
  - Blood creatinine increased [Unknown]
  - Palpitations [Unknown]
  - Alanine aminotransferase increased [Unknown]
  - Hypokalaemia [Unknown]
  - Pulmonary embolism [Unknown]
  - Alopecia [Unknown]
  - Left ventricular dysfunction [Unknown]
